FAERS Safety Report 7020063-7 (Version None)
Quarter: 2010Q3

REPORT INFORMATION
  Report Type: 
  Country: None (occurrence: None)
  Receive Date: 20100929
  Receipt Date: 20100918
  Transmission Date: 20110219
  Serious: Yes (Hospitalization)
  Sender: FDA-Public Use
  Company Number: US-CELGENEUS-163-21880-10091737

PATIENT
  Age: 61 Year
  Sex: Male
  Weight: 72.5 kg

DRUGS (5)
  1. REVLIMID [Suspect]
     Route: 048
     Dates: start: 20091009
  2. REVLIMID [Suspect]
     Route: 048
     Dates: start: 20100820, end: 20100908
  3. DEXAMETHASONE [Suspect]
     Route: 048
     Dates: start: 20091009
  4. DEXAMETHASONE [Suspect]
     Route: 048
     Dates: start: 20100820, end: 20100909
  5. ASPIRIN [Concomitant]
     Indication: PRODUCT USED FOR UNKNOWN INDICATION
     Route: 048

REACTIONS (1)
  - CHOLELITHIASIS [None]
